FAERS Safety Report 8615321-6 (Version None)
Quarter: 2012Q3

REPORT INFORMATION
  Report Type: 
  Country: None (occurrence: None)
  Receive Date: 20120823
  Receipt Date: 20120814
  Transmission Date: 20120928
  Serious: Yes (Hospitalization)
  Sender: FDA-Public Use
  Company Number: IT-ELI_LILLY_AND_COMPANY-IT201208003997

PATIENT
  Sex: Male

DRUGS (7)
  1. ZYPREXA [Suspect]
     Dosage: UNK
     Dates: start: 20120713, end: 20120713
  2. VALPROATE SODIUM [Concomitant]
     Dosage: UNK
     Dates: start: 20120713, end: 20120713
  3. LANSOPRAZOLE [Concomitant]
     Dosage: UNK
     Dates: start: 20120713, end: 20120713
  4. TRAZODONE HCL [Concomitant]
     Dosage: UNK
     Dates: start: 20120713, end: 20120713
  5. CLONAZEPAM [Concomitant]
     Dosage: UNK
     Dates: start: 20120713, end: 20120713
  6. ANAFRANIL [Concomitant]
     Dosage: UNK
     Dates: start: 20120713, end: 20120713
  7. HALOPERIDOL LACTATE [Concomitant]
     Dosage: UNK
     Dates: start: 20120713, end: 20120713

REACTIONS (5)
  - SNORING [None]
  - DYSARTHRIA [None]
  - SOPOR [None]
  - DRUG ABUSE [None]
  - TACHYCARDIA [None]
